FAERS Safety Report 4503737-9 (Version None)
Quarter: 2004Q4

REPORT INFORMATION
  Report Type: 
  Country: None (occurrence: None)
  Receive Date: 20041115
  Receipt Date: 20040922
  Transmission Date: 20050328
  Serious: Yes (Hospitalization)
  Sender: FDA-Public Use
  Company Number: A01200405567

PATIENT
  Age: 78 Year
  Sex: Female

DRUGS (4)
  1. ZOLPIDEM TARTRATE [Suspect]
  2. ZOLEDRONATE [Suspect]
     Indication: OSTEOPOROSIS
     Dosage: UNKNOWN
     Dates: start: 20021011
  3. VITAMIN D [Concomitant]
  4. CALCIUM [Concomitant]

REACTIONS (1)
  - ABDOMINAL DISCOMFORT [None]
